FAERS Safety Report 5556854-9 (Version None)
Quarter: 2007Q4

REPORT INFORMATION
  Report Type: 
  Country: None (occurrence: None)
  Receive Date: 20071212
  Receipt Date: 20071212
  Transmission Date: 20080405
  Serious: Yes (Hospitalization)
  Sender: FDA-Public Use
  Company Number: None

PATIENT
  Age: 58 Year
  Sex: Male

DRUGS (2)
  1. PIPERACILLIN AND TAZOBACTAM [Suspect]
     Dosage: 3.375GM OTHER IV
     Route: 042
     Dates: start: 20071120, end: 20071127
  2. CIPROFLOXACIN [Suspect]
     Dosage: 400MG OTHER IV
     Route: 042
     Dates: start: 20071120, end: 20071204

REACTIONS (1)
  - CLOSTRIDIUM DIFFICILE COLITIS [None]
